FAERS Safety Report 24748477 (Version 1)
Quarter: 2024Q4

REPORT INFORMATION
  Report Type: Other
  Country: GB (occurrence: GB)
  Receive Date: 20241218
  Receipt Date: 20241218
  Transmission Date: 20250114
  Serious: Yes (Disabling, Other)
  Sender: BIOCON
  Company Number: None

PATIENT

DRUGS (1)
  1. ADALIMUMAB [Suspect]
     Active Substance: ADALIMUMAB
     Indication: Rheumatoid arthritis
     Dosage: UNK
     Route: 065
     Dates: start: 20240507, end: 20240603

REACTIONS (1)
  - Skin erosion [Unknown]

NARRATIVE: CASE EVENT DATE: 20240606
